FAERS Safety Report 5464281-8 (Version None)
Quarter: 2007Q3

REPORT INFORMATION
  Report Type: 
  Country: None (occurrence: None)
  Receive Date: 20070921
  Receipt Date: 20070914
  Transmission Date: 20080115
  Serious: Yes (Hospitalization, Other)
  Sender: FDA-Public Use
  Company Number: B0425072A

PATIENT
  Age: 24 Year
  Sex: Female
  Weight: 3.9 kg

DRUGS (1)
  1. ZYBAN [Suspect]
     Route: 048
     Dates: start: 20060510, end: 20060516

REACTIONS (2)
  - DYSPNOEA [None]
  - HYPOAESTHESIA [None]
